FAERS Safety Report 9352287 (Version 1)
Quarter: 2013Q2

REPORT INFORMATION
  Report Type: Spontaneous
  Country: US (occurrence: US)
  Receive Date: 20130617
  Receipt Date: 20130617
  Transmission Date: 20140414
  Serious: Yes (Hospitalization, Other)
  Sender: FDA-Public Use
  Company Number: US-PFIZER INC-2013176949

PATIENT
  Sex: Female

DRUGS (3)
  1. ONDANSETRON [Suspect]
     Indication: NAUSEA
     Dosage: 8 MG, UNK
     Route: 048
     Dates: start: 20130506, end: 20130507
  2. ONDANSETRON [Suspect]
     Indication: VOMITING IN PREGNANCY
  3. ZOLOFT [Suspect]
     Dosage: UNK

REACTIONS (14)
  - Anxiety [Recovering/Resolving]
  - Aphagia [Recovering/Resolving]
  - Depression [Recovering/Resolving]
  - Negative thoughts [Recovering/Resolving]
  - Violence-related symptom [Recovering/Resolving]
  - Crying [Recovering/Resolving]
  - Affect lability [Recovering/Resolving]
  - Insomnia [Recovering/Resolving]
  - Vomiting [Recovering/Resolving]
  - Malaise [Recovering/Resolving]
  - Feeling abnormal [Recovering/Resolving]
  - Drug hypersensitivity [Recovering/Resolving]
  - Pregnancy [Unknown]
  - Drug ineffective [Recovering/Resolving]
